FAERS Safety Report 11932047 (Version 2)
Quarter: 2016Q1

REPORT INFORMATION
  Report Type: Spontaneous
  Country: US (occurrence: US)
  Receive Date: 20160120
  Receipt Date: 20160128
  Transmission Date: 20160526
  Serious: No
  Sender: FDA-Public Use
  Company Number: US-PFIZER INC-2015404748

PATIENT
  Age: 75 Year
  Sex: Female
  Weight: 70 kg

DRUGS (17)
  1. IBRANCE [Suspect]
     Active Substance: PALBOCICLIB
     Indication: BREAST CANCER METASTATIC
     Dosage: 125 MG, 1X/DAY (WITH BREAKFAST)
     Route: 048
     Dates: start: 20151128, end: 20151210
  2. ASCORBIC ACID. [Concomitant]
     Active Substance: ASCORBIC ACID
     Dosage: 500 MG, DAILY
     Route: 048
  3. AMOXIL [Concomitant]
     Active Substance: AMOXICILLIN
     Dosage: 500 MG, 3X/DAY
     Route: 048
  4. ARIMIDEX [Concomitant]
     Active Substance: ANASTROZOLE
     Dosage: 1 MG, DAILY (1 TABLET BY MOUTH DAILY)
     Route: 048
  5. HYDRODIURIL [Concomitant]
     Active Substance: HYDROCHLOROTHIAZIDE
     Dosage: 12.5 MG, DAILY
     Route: 048
  6. CENTRUM SILVER [Concomitant]
     Active Substance: MINERALS\VITAMINS
     Route: 048
  7. RANITIDINE HCL [Concomitant]
     Active Substance: RANITIDINE HYDROCHLORIDE
     Dosage: 15 MG, 2X/DAY
  8. TENORMIN [Concomitant]
     Active Substance: ATENOLOL
     Dosage: 12.5 MG, DAILY
     Route: 048
  9. FERROUS SULFATE [Concomitant]
     Active Substance: FERROUS SULFATE\FERROUS SULFATE, DRIED
     Dosage: 324 MG, 2X/DAY
     Route: 048
  10. NORCO [Concomitant]
     Active Substance: ACETAMINOPHEN\HYDROCODONE BITARTRATE
     Indication: PAIN
     Dosage: UNK, AS NEEDED (5-325MG PER TABLET/ TAKE 1-2 TABLETS BY MOUTH EVERY 4 HOURS AS NEEDED)
     Route: 048
  11. FEMARA [Suspect]
     Active Substance: LETROZOLE
     Indication: BREAST CANCER METASTATIC
     Dosage: 2.5 MG, DAILY
     Route: 048
  12. NOVOLIN N [Concomitant]
     Active Substance: INSULIN HUMAN
     Dosage: 19 DF, DAILY
     Route: 058
  13. PRINIVIL [Concomitant]
     Active Substance: LISINOPRIL
     Dosage: 10 MG, DAILY
     Route: 048
  14. ASPIRIN 81 [Concomitant]
     Active Substance: ASPIRIN
     Dosage: 81 MG, DAILY
     Route: 048
  15. HUMULIN N [Concomitant]
     Active Substance: INSULIN HUMAN
     Dosage: 19 DF, DAILY
     Route: 058
  16. ZESTRIL [Concomitant]
     Active Substance: LISINOPRIL
     Dosage: 10 MG, DAILY
     Route: 048
  17. SENNA LAXATIVE [Concomitant]
     Active Substance: SENNOSIDES
     Indication: CONSTIPATION
     Dosage: 8.6 MG, AS NEEDED (: TAKE 1-4 TABLETS BY MOUTH TWICE DAILY AS NEEDED)
     Route: 048

REACTIONS (2)
  - Immune system disorder [Recovering/Resolving]
  - Fatigue [Unknown]
